FAERS Safety Report 21212908 (Version 1)
Quarter: 2022Q3

REPORT INFORMATION
  Report Type: Spontaneous
  Country: US (occurrence: US)
  Receive Date: 20220815
  Receipt Date: 20220815
  Transmission Date: 20221027
  Serious: Yes (Other)
  Sender: FDA-Public Use
  Company Number: US-ALLERGAN-2226328US

PATIENT
  Sex: Male
  Weight: 67.131 kg

DRUGS (6)
  1. REFRESH OPTIVE [Suspect]
     Active Substance: CARBOXYMETHYLCELLULOSE SODIUM\GLYCERIN
     Indication: Dry eye
     Dosage: 3 GTT, QD
     Route: 047
  2. PREDNISOLONE ACETATE [Concomitant]
     Active Substance: PREDNISOLONE ACETATE
     Indication: Postoperative care
  3. RESTASIS [Concomitant]
     Active Substance: CYCLOSPORINE
     Indication: Postoperative care
  4. LIPITOR [Concomitant]
     Active Substance: ATORVASTATIN CALCIUM
     Indication: Blood cholesterol
     Dosage: UNK
  5. ZETIA [Concomitant]
     Active Substance: EZETIMIBE
     Indication: Blood cholesterol
     Dosage: UNK
  6. SILODOSIN [Concomitant]
     Active Substance: SILODOSIN
     Indication: Cystitis

REACTIONS (4)
  - Cataract [Recovered/Resolved]
  - Corneal transplant [Recovered/Resolved]
  - Eye irritation [Recovered/Resolved]
  - Product complaint [Unknown]

NARRATIVE: CASE EVENT DATE: 20220201
